FAERS Safety Report 7609470-9 (Version None)
Quarter: 2011Q3

REPORT INFORMATION
  Report Type: 
  Country: None (occurrence: None)
  Receive Date: 20110714
  Receipt Date: 20110705
  Transmission Date: 20111222
  Serious: Yes (Other)
  Sender: FDA-Public Use
  Company Number: IN-BAXTER-2011BH022560

PATIENT
  Age: 5 Year
  Sex: Male
  Weight: 15 kg

DRUGS (2)
  1. SEVOFLURANE [Suspect]
     Indication: GENERAL ANAESTHESIA
     Route: 055
  2. MIDAZOLAM HCL [Concomitant]
     Indication: PREMEDICATION
     Route: 048

REACTIONS (1)
  - ATRIOVENTRICULAR DISSOCIATION [None]
